FAERS Safety Report 22612355 (Version 1)
Quarter: 2023Q2

REPORT INFORMATION
  Report Type: Spontaneous
  Country: GB (occurrence: GB)
  Receive Date: 20230617
  Receipt Date: 20230617
  Transmission Date: 20230721
  Serious: Yes (Other)
  Sender: FDA-Public Use
  Company Number: GB-MHRA-MED-202305260800433490-CDPHL

PATIENT
  Age: 25 Year
  Sex: Female
  Weight: 66 kg

DRUGS (3)
  1. FLUCONAZOLE [Suspect]
     Active Substance: FLUCONAZOLE
     Indication: Vulvovaginal candidiasis
     Dosage: UNIT DOSE: 150G, FREQUENCY: 1, DURATION: 1 DAYS
     Route: 048
     Dates: start: 20230523, end: 20230523
  2. LORATADINE [Concomitant]
     Active Substance: LORATADINE
     Indication: Seasonal allergy
  3. MERCILON [Concomitant]
     Active Substance: DESOGESTREL\ETHINYL ESTRADIOL
     Indication: Contraception
     Dosage: ADDITIONAL INFO:CONTRACEPTIVE PILL

REACTIONS (6)
  - Fixed eruption [Not Recovered/Not Resolved]
  - Insomnia [Recovering/Resolving]
  - Lip pruritus [Unknown]
  - Anal pruritus [Unknown]
  - Perineal abscess [Unknown]
  - Perineal swelling [Unknown]

NARRATIVE: CASE EVENT DATE: 20230523
